FAERS Safety Report 12640202 (Version 1)
Quarter: 2016Q3

REPORT INFORMATION
  Report Type: Spontaneous
  Country: US (occurrence: None)
  Receive Date: 20160809
  Receipt Date: 20160809
  Transmission Date: 20161109
  Serious: Yes (Other)
  Sender: FDA-Public Use
  Company Number: None

PATIENT
  Age: 43 Year
  Sex: Female
  Weight: 48.54 kg

DRUGS (2)
  1. FLUORESCEIN SODIUM BENOXINATE HY, 0.25%/0.4% [Suspect]
     Active Substance: BENOXINATE HYDROCHLORIDE\FLUORESCEIN SODIUM
     Indication: OPHTHALMOLOGICAL EXAMINATION
     Route: 047
     Dates: start: 20160808
  2. TROPICAMIDE. [Concomitant]
     Active Substance: TROPICAMIDE

REACTIONS (1)
  - Corneal oedema [None]

NARRATIVE: CASE EVENT DATE: 20160808
